FAERS Safety Report 21190388 (Version 2)
Quarter: 2022Q3

REPORT INFORMATION
  Report Type: Spontaneous
  Country: FR (occurrence: FR)
  Receive Date: 20220809
  Receipt Date: 20220823
  Transmission Date: 20221026
  Serious: Yes (Death, Hospitalization, Other)
  Sender: FDA-Public Use
  Company Number: FR-JAZZ-2022-FR-021742

PATIENT
  Age: 57 Year
  Sex: Female

DRUGS (28)
  1. TACROLIMUS [Suspect]
     Active Substance: TACROLIMUS
     Indication: Prophylaxis against transplant rejection
     Dosage: 3 DF (UNIT), ONCE DAILY
     Route: 065
     Dates: start: 20220522
  2. TACROLIMUS [Suspect]
     Active Substance: TACROLIMUS
     Dosage: 3 DF (UNIT), ONCE DAILY
     Route: 065
     Dates: start: 20220619, end: 20220620
  3. DEFITELIO [Suspect]
     Active Substance: DEFIBROTIDE SODIUM
     Indication: Venoocclusive disease
     Dosage: 200 MG/2.5 ML, 450 MG, EVERY 6 HOURS
     Route: 065
     Dates: start: 20220615
  4. MIDAZOLAM [Suspect]
     Active Substance: MIDAZOLAM
     Indication: Product used for unknown indication
     Dosage: 50 MG/J UNKNOWN FREQ.
     Route: 065
     Dates: start: 20220620, end: 20220620
  5. NOREPINEPHRINE [Suspect]
     Active Substance: NOREPINEPHRINE
     Indication: Hypertension
     Dosage: UNK UNK, UNKNOWN FREQ.
     Route: 065
     Dates: start: 20220619, end: 20220620
  6. PROPOFOL [Suspect]
     Active Substance: PROPOFOL
     Indication: Product used for unknown indication
     Dosage: 20 MG/J, UNKNOWN FREQ.
     Route: 065
     Dates: start: 20220620, end: 20220620
  7. AMBISOME [Suspect]
     Active Substance: AMPHOTERICIN B
     Indication: Fungal infection
     Route: 065
     Dates: start: 20220619, end: 20220620
  8. NPLATE [Suspect]
     Active Substance: ROMIPLOSTIM
     Indication: Immune thrombocytopenia
     Dosage: 70 ?G, ONCE WEEKLY (EVERY WEEK)
     Route: 065
  9. FUROSEMIDE [Suspect]
     Active Substance: FUROSEMIDE
     Indication: Product used for unknown indication
     Dosage: UNK UNK, UNKNOWN FREQ.
     Route: 065
     Dates: start: 20220619, end: 20220620
  10. SUFENTANIL [Suspect]
     Active Substance: SUFENTANIL
     Indication: Product used for unknown indication
     Dosage: 250?G/J, UNKNOWN FREQ.
     Route: 065
     Dates: start: 20220620, end: 20220620
  11. PENTACARINAT [Suspect]
     Active Substance: PENTAMIDINE ISETHIONATE
     Indication: Infection prophylaxis
     Dosage: 1 UNK, MONTHLY
     Route: 065
     Dates: start: 20220619, end: 20220620
  12. CELLCEPT [Suspect]
     Active Substance: MYCOPHENOLATE MOFETIL
     Indication: Prophylaxis against transplant rejection
     Route: 065
     Dates: start: 20220619, end: 20220620
  13. METRONIDAZOLE [Suspect]
     Active Substance: METRONIDAZOLE
     Indication: Product used for unknown indication
     Dosage: 1 DF (UNIT), THRICE DAILY
     Route: 065
     Dates: start: 20220620, end: 20220620
  14. MORPHINE [Suspect]
     Active Substance: MORPHINE
     Indication: Pain
     Dosage: 10 MG, ONCE DAILY (24 H)
     Route: 065
     Dates: start: 20220619
  15. CEFEPIME [Suspect]
     Active Substance: CEFEPIME HYDROCHLORIDE
     Indication: Febrile bone marrow aplasia
     Dosage: 1 DF (UNIT), THRICE DAILY
     Route: 065
     Dates: start: 20220619, end: 20220620
  16. PANTOPRAZOLE [Suspect]
     Active Substance: PANTOPRAZOLE
     Indication: Abdominal pain upper
     Dosage: 1 DF, ONCE DAILY (AT NIGHT)
     Route: 065
     Dates: start: 20220619, end: 20220620
  17. URSODIOL [Suspect]
     Active Substance: URSODIOL
     Indication: Venoocclusive disease
     Dosage: 0.5 UNIT UNKNOWN, THRICE DAILY (EVERY 8 HOURS)
     Route: 065
     Dates: start: 20220428
  18. PHLOROGLUCINOL [Suspect]
     Active Substance: PHLOROGLUCINOL
     Indication: Pain
     Dosage: 1 DF (UNIT), THRICE DAILY
     Route: 065
     Dates: start: 20220619, end: 20220620
  19. CELLCEPT [Suspect]
     Active Substance: MYCOPHENOLATE MOFETIL
     Indication: Prophylaxis against transplant rejection
     Dosage: 0.5 DF (UNIT), TWICE DAILY
     Route: 065
     Dates: start: 20220616
  20. METHYLPREDNISOLONE [Suspect]
     Active Substance: METHYLPREDNISOLONE
     Indication: Blood disorder
     Route: 065
     Dates: start: 20220615
  21. METHYLPREDNISOLONE [Suspect]
     Active Substance: METHYLPREDNISOLONE
     Dosage: UNK UNK, UNKNOWN FREQ.
     Route: 065
     Dates: start: 20220619, end: 20220620
  22. NEFOPAM [Suspect]
     Active Substance: NEFOPAM
     Indication: Pain
     Route: 065
     Dates: start: 20220619, end: 20220620
  23. LINEZOLID [Suspect]
     Active Substance: LINEZOLID
     Indication: Product used for unknown indication
     Dosage: 1 DF (UNIT), TWICE DAILY
     Route: 065
     Dates: start: 20220620, end: 20220620
  24. METOCLOPRAMIDE [Suspect]
     Active Substance: METOCLOPRAMIDE
     Indication: Nausea
     Dosage: 1 DF (UNIT), TWICE DAILY
     Route: 065
     Dates: start: 20220619, end: 20220620
  25. VALACYCLOVIR HYDROCHLORIDE [Concomitant]
     Active Substance: VALACYCLOVIR HYDROCHLORIDE
     Indication: Infection prophylaxis
     Dosage: UNK UNK, UNKNOWN FREQ.
     Route: 065
     Dates: start: 20220619
  26. TRAMADOL HYDROCHLORIDE [Concomitant]
     Active Substance: TRAMADOL HYDROCHLORIDE
     Indication: Pain
     Route: 065
     Dates: start: 20220518, end: 20220619
  27. DOLIPRANE [Concomitant]
     Active Substance: ACETAMINOPHEN
     Indication: Pain
     Dosage: 2 DF (UNIT), 4 TIMES DAILY
     Route: 065
     Dates: start: 20220428, end: 20220619
  28. PREVYMIS [Concomitant]
     Active Substance: LETERMOVIR
     Indication: Infection prophylaxis
     Dosage: 1 DF (UNIT), ONCE DAILY
     Route: 065
     Dates: start: 20220619

REACTIONS (3)
  - Multiple organ dysfunction syndrome [Fatal]
  - Acute respiratory distress syndrome [Unknown]
  - Abdominal pain [Unknown]

NARRATIVE: CASE EVENT DATE: 20220618
